FAERS Safety Report 9264894 (Version 1)
Quarter: 2013Q2

REPORT INFORMATION
  Report Type: Spontaneous
  Country: US (occurrence: None)
  Receive Date: 20130426
  Receipt Date: 20130426
  Transmission Date: 20140414
  Serious: Yes (Life-Threatening, Other)
  Sender: FDA-Public Use
  Company Number: 2013P1004693

PATIENT
  Age: 64 Year
  Sex: Female
  Weight: 81.65 kg

DRUGS (9)
  1. NUDERM BLENDER [Suspect]
     Route: 061
     Dates: start: 2010, end: 2012
  2. NUDERM CLEAR [Suspect]
     Route: 061
     Dates: start: 2010, end: 2012
  3. NUDERM EXFODERM FORTE [Suspect]
     Route: 061
     Dates: start: 2010, end: 2012
  4. NUDERM FOAMING GEL [Suspect]
     Route: 061
     Dates: start: 2010, end: 2012
  5. NUDERM SUNFADER SPF 15 [Suspect]
     Route: 061
     Dates: start: 2010, end: 2012
  6. NUDERM TONER [Suspect]
     Route: 061
     Dates: start: 2010, end: 2012
  7. UNSPECIFIED PRODUCT MIXED W/NUDERM BLENDER [Suspect]
     Route: 061
     Dates: start: 2010, end: 2012
  8. UNSPECIFIED CHEMOTHERAPY DRUGS [Suspect]
     Dates: start: 201110, end: 201202
  9. SYNTHROID [Concomitant]

REACTIONS (7)
  - Breast cancer [None]
  - Alopecia [None]
  - Nail discolouration [None]
  - Nausea [None]
  - Vomiting [None]
  - Fatigue [None]
  - Radiation skin injury [None]
